FAERS Safety Report 9271777 (Version 3)
Quarter: 2014Q4

REPORT INFORMATION
  Report Type: Spontaneous
  Country: US (occurrence: US)
  Receive Date: 20130506
  Receipt Date: 20141022
  Transmission Date: 20150529
  Serious: Yes (Hospitalization, Other)
  Sender: FDA-Public Use
  Company Number: US-009507513-1305USA000388

PATIENT
  Sex: Male
  Weight: 119.96 kg

DRUGS (2)
  1. PROPECIA [Suspect]
     Active Substance: FINASTERIDE
     Indication: ALOPECIA
     Dosage: 1 MG, QD
     Route: 048
     Dates: start: 1998
  2. FINASTERIDE. [Suspect]
     Active Substance: FINASTERIDE
     Indication: ALOPECIA
     Dosage: 5 MG, 1/5 TABLET DAILY
     Route: 048
     Dates: start: 20080201, end: 20090506

REACTIONS (51)
  - Radical prostatectomy [Unknown]
  - Vasectomy [Unknown]
  - Insomnia [Unknown]
  - Intervertebral disc degeneration [Unknown]
  - Intervertebral disc protrusion [Unknown]
  - Neoplasm prostate [Unknown]
  - Palpitations [Unknown]
  - Musculoskeletal chest pain [Unknown]
  - Diverticulum [Unknown]
  - Femoral hernia [Unknown]
  - Hypogonadism [Unknown]
  - Ligament operation [Unknown]
  - Chest discomfort [Unknown]
  - Muscular weakness [Unknown]
  - Substance abuse [Unknown]
  - Intervertebral disc disorder [Unknown]
  - Acrochordon [Unknown]
  - Arthritis [Unknown]
  - Vision blurred [Unknown]
  - Hypercholesterolaemia [Unknown]
  - Wrong technique in drug usage process [Unknown]
  - Rectal spasm [Unknown]
  - Arthralgia [Unknown]
  - Actinic keratosis [Unknown]
  - Spinal osteoarthritis [Unknown]
  - Limb injury [Unknown]
  - Joint injury [Unknown]
  - Injury [Unknown]
  - Sexual dysfunction [Not Recovered/Not Resolved]
  - Depression [Unknown]
  - Enostosis [Unknown]
  - Neck pain [Unknown]
  - Headache [Unknown]
  - Drug administration error [Unknown]
  - Knee operation [Unknown]
  - Organic erectile dysfunction [Not Recovered/Not Resolved]
  - Stress [Unknown]
  - Alcohol abuse [Unknown]
  - Tendon operation [Unknown]
  - Neck pain [Unknown]
  - Arthritis [Unknown]
  - Dizziness postural [Unknown]
  - Musculoskeletal pain [Unknown]
  - Osteoarthritis [Unknown]
  - Skin disorder [Unknown]
  - Prostate cancer [Not Recovered/Not Resolved]
  - Blood calcium increased [Unknown]
  - Plantar fasciitis [Unknown]
  - Adverse drug reaction [Unknown]
  - Flank pain [Unknown]
  - Renal cyst [Unknown]

NARRATIVE: CASE EVENT DATE: 200008
